FAERS Safety Report 20631998 (Version 3)
Quarter: 2022Q2

REPORT INFORMATION
  Report Type: Spontaneous
  Country: KR (occurrence: KR)
  Receive Date: 20220324
  Receipt Date: 20220506
  Transmission Date: 20220720
  Serious: Yes (Other)
  Sender: FDA-Public Use
  Company Number: KR-009507513-2203KOR006835

PATIENT
  Age: 68 Year
  Sex: Female
  Weight: 59.3 kg

DRUGS (22)
  1. PEMBROLIZUMAB [Suspect]
     Active Substance: PEMBROLIZUMAB
     Indication: Endometrial cancer
     Dosage: TOTAL DAILY DOSE: 200 MILLIGRAM
     Route: 042
     Dates: start: 20210811, end: 20210811
  2. PEMBROLIZUMAB [Suspect]
     Active Substance: PEMBROLIZUMAB
     Dosage: TOTAL DAILY DOSE: 200 MILLIGRAM
     Route: 042
     Dates: start: 20210901, end: 20210901
  3. PEMBROLIZUMAB [Suspect]
     Active Substance: PEMBROLIZUMAB
     Dosage: TOTAL DAILY DOSE: 200 MILLIGRAM
     Route: 042
     Dates: start: 20210927, end: 20210927
  4. LENVATINIB MESYLATE [Suspect]
     Active Substance: LENVATINIB MESYLATE
     Indication: Endometrial cancer
     Dosage: TOTAL DAILY DOSE: 10 MG
     Route: 048
     Dates: start: 20210811, end: 20211104
  5. MICATERE PLUS [Concomitant]
     Indication: Hypertension
     Dosage: 1 TABLET DAILY
     Route: 048
     Dates: start: 20200316
  6. ALMAGEL-F [Concomitant]
     Indication: Chronic gastritis
     Dosage: TOTAL DAILY DOSE: 4 PACKS
     Route: 048
     Dates: start: 20210401, end: 20210817
  7. PIRENOXINE [Concomitant]
     Active Substance: PIRENOXINE
     Indication: Retinal disorder
     Dosage: TOTAL DAILY DOSE: 3 DROPS
     Route: 047
     Dates: start: 20210525
  8. DIMETHICONE\PANCRELIPASE\URSODIOL [Concomitant]
     Active Substance: DIMETHICONE\PANCRELIPASE\URSODIOL
     Indication: Chronic gastritis
     Dosage: TOTAL DAILY DOSE: 3 TABLETS
     Route: 048
     Dates: start: 20210602, end: 20211101
  9. MAGMIL S [Concomitant]
     Indication: Constipation
     Dosage: TOTAL DAILY DOSE: 3 TABLETS
     Route: 048
     Dates: start: 20210621, end: 20211101
  10. HYALURONATE SODIUM [Concomitant]
     Active Substance: HYALURONATE SODIUM
     Indication: Prophylaxis
     Dosage: TOTAL DAILY DOSE: 3 DROPS
     Route: 047
     Dates: start: 20210525
  11. AMINO ACIDS\DEXTROSE\ELECTROLYTES NOS\SOYBEAN OIL\VITAMINS [Concomitant]
     Active Substance: AMINO ACIDS\DEXTROSE\ELECTROLYTES NOS\SOYBEAN OIL\VITAMINS
     Indication: Decreased appetite
     Dosage: 1 BAG (654 ML)
     Route: 042
     Dates: start: 20210817, end: 20210817
  12. AMINO ACIDS\DEXTROSE\ELECTROLYTES NOS\SOYBEAN OIL\VITAMINS [Concomitant]
     Active Substance: AMINO ACIDS\DEXTROSE\ELECTROLYTES NOS\SOYBEAN OIL\VITAMINS
     Dosage: 1 BAG (654 ML)
     Route: 042
     Dates: start: 20210831, end: 20210904
  13. TIROPRAMIDE [Concomitant]
     Active Substance: TIROPRAMIDE
     Indication: Decreased appetite
     Dosage: 2 TABLETS
     Route: 048
     Dates: start: 20210804
  14. TRESTAN [CYANOCOBALAMIN] [Concomitant]
     Indication: Decreased appetite
     Dosage: 3 CAPSULES
     Route: 048
     Dates: start: 20210715
  15. PROPACETAMOL HYDROCHLORIDE [Concomitant]
     Active Substance: PROPACETAMOL HYDROCHLORIDE
     Indication: Pain
     Dosage: 1 VIAL
     Route: 042
     Dates: start: 20210805
  16. KETORAC [Concomitant]
     Indication: Pain
     Dosage: 1 AMPULE
     Route: 042
     Dates: start: 20210813
  17. NUCYNTA ER [Concomitant]
     Active Substance: TAPENTADOL HYDROCHLORIDE
     Indication: Pain
     Dosage: 2 TABLETS
     Route: 048
     Dates: start: 20210813
  18. FENTANYL [Concomitant]
     Active Substance: FENTANYL
     Indication: Pain
     Dosage: 1 PATCH (12MCG/H, 5.25CM3)
     Route: 062
     Dates: start: 20210813, end: 20210905
  19. BEECOM HEXA [Concomitant]
     Indication: Decreased appetite
     Dosage: 1 AMPULE
     Route: 042
     Dates: start: 20210814, end: 20210814
  20. DAIHAN VITAMIN C [Concomitant]
     Indication: Decreased appetite
     Dosage: 1 AMPULE (100MG/2ML)
     Route: 042
     Dates: start: 20210814, end: 20210814
  21. HEPA MERZ [Concomitant]
     Indication: Hydronephrosis
     Dosage: 1 AMPULE
     Route: 042
     Dates: start: 20210831, end: 20210831
  22. MONUROL [Concomitant]
     Active Substance: FOSFOMYCIN TROMETHAMINE
     Indication: Hydronephrosis
     Dosage: 1 PACK
     Route: 048
     Dates: start: 20210831, end: 20210831

REACTIONS (17)
  - Thrombocytopenia [Recovered/Resolved]
  - Thrombocytopenia [Not Recovered/Not Resolved]
  - Hypokalaemia [Recovered/Resolved]
  - Nausea [Not Recovered/Not Resolved]
  - Vomiting [Recovered/Resolved]
  - Pyrexia [Recovered/Resolved]
  - Productive cough [Recovered/Resolved]
  - Pyrexia [Recovered/Resolved]
  - Diarrhoea [Recovered/Resolved]
  - Constipation [Not Recovered/Not Resolved]
  - Pyrexia [Recovered/Resolved]
  - Diarrhoea [Not Recovered/Not Resolved]
  - Abdominal pain [Recovered/Resolved]
  - Back pain [Not Recovered/Not Resolved]
  - Hypoalbuminaemia [Not Recovered/Not Resolved]
  - Urinary tract infection [Unknown]
  - Product use issue [Unknown]

NARRATIVE: CASE EVENT DATE: 20210101
